FAERS Safety Report 6495046-6 (Version None)
Quarter: 2009Q4

REPORT INFORMATION
  Report Type: 
  Country: None (occurrence: None)
  Receive Date: 20091214
  Receipt Date: 20090428
  Transmission Date: 20100525
  Serious: No
  Sender: FDA-Public Use
  Company Number: US-BRISTOL-MYERS SQUIBB COMPANY-14598734

PATIENT
  Age: 1 Decade
  Sex: Male

DRUGS (3)
  1. ABILIFY [Suspect]
     Indication: ABNORMAL BEHAVIOUR
     Dosage: ABILIFY RESUMED ON 18APR09
     Dates: start: 20090418
  2. RISPERDAL [Suspect]
  3. FOCALIN [Suspect]

REACTIONS (1)
  - PETECHIAE [None]
